FAERS Safety Report 5599427-4 (Version None)
Quarter: 2008Q1

REPORT INFORMATION
  Report Type: 
  Country: None (occurrence: None)
  Receive Date: 20080122
  Receipt Date: 20080110
  Transmission Date: 20080703
  Serious: Yes (Hospitalization)
  Sender: FDA-Public Use
  Company Number: GB-PFIZER INC-2007103008

PATIENT
  Sex: Male
  Weight: 103 kg

DRUGS (8)
  1. LYRICA [Suspect]
     Indication: PAIN
     Route: 048
     Dates: start: 20060706, end: 20060801
  2. LYRICA [Suspect]
     Indication: NEURALGIA
  3. GABAPENTIN [Suspect]
  4. RAMIPRIL [Concomitant]
     Route: 048
  5. NIFEDIPINE [Concomitant]
     Route: 048
     Dates: start: 20060202
  6. EPREX [Concomitant]
     Route: 058
  7. ALFACALCIDOL [Concomitant]
     Route: 042
     Dates: start: 20060418
  8. RENAGEL [Concomitant]
     Route: 048
     Dates: start: 20051230

REACTIONS (4)
  - NAUSEA [None]
  - NO THERAPEUTIC RESPONSE [None]
  - PAIN [None]
  - RENAL DISORDER [None]
